FAERS Safety Report 7405655-5 (Version None)
Quarter: 2011Q2

REPORT INFORMATION
  Report Type: 
  Country: None (occurrence: None)
  Receive Date: 20110411
  Receipt Date: 20110405
  Transmission Date: 20111010
  Serious: Yes (Other)
  Sender: FDA-Public Use
  Company Number: PHHY2011FR23469

PATIENT
  Age: 40 Year
  Sex: Female
  Weight: 45 kg

DRUGS (1)
  1. STALEVO 100 [Suspect]
     Indication: PARKINSON'S DISEASE

REACTIONS (5)
  - PROTEIN URINE PRESENT [None]
  - CHROMATURIA [None]
  - NEUROGENIC BLADDER [None]
  - URINARY TRACT INFECTION [None]
  - URINARY NITROGEN INCREASED [None]
